FAERS Safety Report 5535733-7 (Version None)
Quarter: 2007Q4

REPORT INFORMATION
  Report Type: 
  Country: None (occurrence: None)
  Receive Date: 20071204
  Receipt Date: 20071204
  Transmission Date: 20080405
  Serious: Yes (Hospitalization)
  Sender: FDA-Public Use
  Company Number: None

PATIENT
  Age: 51 Year
  Sex: Male
  Weight: 74 kg

DRUGS (2)
  1. CETUXIMAB [Suspect]
     Indication: NEOPLASM MALIGNANT
     Dosage: 400MG/M2 IV X 1 250MG/M2 IV WEEKLY
     Route: 042
     Dates: start: 20070606, end: 20071120
  2. CETUXIMAB [Suspect]
     Indication: NEOPLASM MALIGNANT
     Dosage: 400MG/M2 IV X 1 250MG/M2 IV WEEKLY
     Route: 042
     Dates: start: 20070530

REACTIONS (1)
  - CELLULITIS [None]
